FAERS Safety Report 4576838-7 (Version None)
Quarter: 2005Q1

REPORT INFORMATION
  Report Type: 
  Country: None (occurrence: None)
  Receive Date: 20050207
  Receipt Date: 20050127
  Transmission Date: 20050727
  Serious: No
  Sender: FDA-Public Use
  Company Number: MED000014

PATIENT
  Age: 27 Year
  Sex: Female
  Weight: 91.173 kg

DRUGS (3)
  1. LACTATED RINGER'S [Suspect]
     Dosage: 1 L; ONCE; INTRAVENOUS
     Route: 042
     Dates: start: 20050126, end: 20050126
  2. OXYTOCIN [Concomitant]
  3. NORMAL SALINE [Concomitant]

REACTIONS (5)
  - EYE SWELLING [None]
  - INFUSION RELATED REACTION [None]
  - OCULAR HYPERAEMIA [None]
  - PRURITUS [None]
  - THROAT IRRITATION [None]
